FAERS Safety Report 14389577 (Version 2)
Quarter: 2018Q3

REPORT INFORMATION
  Report Type: Spontaneous
  Country: US (occurrence: US)
  Receive Date: 20180115
  Receipt Date: 20180726
  Transmission Date: 20181010
  Serious: Yes (Other)
  Sender: FDA-Public Use
  Company Number: US-SA-2017SA243769

PATIENT
  Age: 35 Year
  Sex: Female
  Weight: 80 kg

DRUGS (5)
  1. PARAPLATIN [Concomitant]
     Active Substance: CARBOPLATIN
  2. TAXOTERE [Suspect]
     Active Substance: DOCETAXEL
     Dosage: UNK UNK,QCY
     Route: 051
     Dates: start: 20071108, end: 20071108
  3. NEOSAR [Concomitant]
     Active Substance: CYCLOPHOSPHAMIDE
  4. TAXOTERE [Suspect]
     Active Substance: DOCETAXEL
     Indication: BREAST CANCER FEMALE
     Dosage: UNK UNK,QCY
     Route: 051
     Dates: start: 20070906, end: 20070906
  5. CERUBIDINE [Concomitant]
     Active Substance: DAUNORUBICIN HYDROCHLORIDE

REACTIONS (3)
  - Anxiety [Unknown]
  - Alopecia [Recovering/Resolving]
  - Emotional distress [Unknown]

NARRATIVE: CASE EVENT DATE: 200805
